FAERS Safety Report 4472868-4 (Version None)
Quarter: 2004Q4

REPORT INFORMATION
  Report Type: 
  Country: None (occurrence: None)
  Receive Date: 20041012
  Receipt Date: 20041012
  Transmission Date: 20050328
  Serious: Yes (Hospitalization)
  Sender: FDA-Public Use
  Company Number: None

PATIENT
  Age: 10 Year
  Sex: Female

DRUGS (1)
  1. PHENYTOIN [Suspect]

REACTIONS (4)
  - ATAXIA [None]
  - GAIT DISTURBANCE [None]
  - LEUKOPENIA [None]
  - VOMITING [None]
